FAERS Safety Report 15547173 (Version 2)
Quarter: 2018Q4

REPORT INFORMATION
  Report Type: Spontaneous
  Country: US (occurrence: US)
  Receive Date: 20181024
  Receipt Date: 20181122
  Transmission Date: 20190205
  Serious: No
  Sender: FDA-Public Use
  Company Number: US-ASTRAZENECA-2018SF32190

PATIENT
  Sex: Female

DRUGS (1)
  1. PULMICORT FLEXHALER [Suspect]
     Active Substance: BUDESONIDE
     Dosage: 90 MCG AND 180 MCG INTERCHANGEABLY, ONE INHALATION, TWICE DAILY
     Route: 055

REACTIONS (5)
  - Incorrect dose administered by device [Not Recovered/Not Resolved]
  - Product quality issue [Unknown]
  - Feeling abnormal [Not Recovered/Not Resolved]
  - Product dose omission [Not Recovered/Not Resolved]
  - Intentional product misuse [Not Recovered/Not Resolved]
